FAERS Safety Report 4543136-7 (Version None)
Quarter: 2004Q4

REPORT INFORMATION
  Report Type: 
  Country: None (occurrence: None)
  Receive Date: 20041228
  Receipt Date: 20041213
  Transmission Date: 20050328
  Serious: Yes (Life-Threatening, Hospitalization)
  Sender: FDA-Public Use
  Company Number: 200409204

PATIENT
  Age: 72 Year
  Sex: Male

DRUGS (4)
  1. ALBUMINAR-5 [Suspect]
     Indication: CHOLECYSTECTOMY
     Dosage: 100 ML DAILY IV
     Route: 042
     Dates: start: 20041118, end: 20041118
  2. ISOFLURANE [Concomitant]
  3. XYLOCAINE [Concomitant]
  4. ANAPEINE 1% [Concomitant]

REACTIONS (11)
  - ALANINE AMINOTRANSFERASE INCREASED [None]
  - ASPARTATE AMINOTRANSFERASE INCREASED [None]
  - BLOOD ALKALINE PHOSPHATASE INCREASED [None]
  - BLOOD PRESSURE DECREASED [None]
  - C-REACTIVE PROTEIN INCREASED [None]
  - CARDIAC ARREST [None]
  - GAMMA-GLUTAMYLTRANSFERASE INCREASED [None]
  - HAEMATOCRIT DECREASED [None]
  - HAEMOGLOBIN DECREASED [None]
  - SHOCK [None]
  - VENTRICULAR FIBRILLATION [None]
